FAERS Safety Report 8049886-2 (Version None)
Quarter: 2011Q4

REPORT INFORMATION
  Report Type: 
  Country: None (occurrence: None)
  Receive Date: 20111213
  Receipt Date: 20111013
  Transmission Date: 20120403
  Serious: Yes (Other)
  Sender: FDA-Public Use
  Company Number: US-006578

PATIENT
  Sex: Female

DRUGS (2)
  1. EPINEPHRINE [Concomitant]
  2. TRANEXAMIC ACID [Suspect]
     Indication: MENORRHAGIA
     Dosage: (1300 MG BID ORAL)
     Route: 048
     Dates: start: 20110801

REACTIONS (3)
  - PHARYNGEAL OEDEMA [None]
  - SWOLLEN TONGUE [None]
  - THERAPY REGIMEN CHANGED [None]
